FAERS Safety Report 20034510 (Version 1)
Quarter: 2021Q4

REPORT INFORMATION
  Report Type: Report from Study
  Country: DE (occurrence: DE)
  Receive Date: 20211104
  Receipt Date: 20211104
  Transmission Date: 20220303
  Serious: Yes (Other)
  Sender: FDA-Public Use
  Company Number: DE-MYLANLABS-2021M1079861

PATIENT
  Age: 52 Year
  Sex: Female
  Weight: 62 kg

DRUGS (14)
  1. PANTOPRAZOLE [Suspect]
     Active Substance: PANTOPRAZOLE
     Indication: Product used for unknown indication
     Dosage: 40 MILLIGRAM
  2. PANTOPRAZOLE [Suspect]
     Active Substance: PANTOPRAZOLE
     Dosage: 40 MILLIGRAM
  3. OCREVUS [Suspect]
     Active Substance: OCRELIZUMAB
     Indication: Relapsing-remitting multiple sclerosis
     Dosage: 300 MILLIGRAM
     Route: 042
     Dates: start: 20180523
  4. OCREVUS [Suspect]
     Active Substance: OCRELIZUMAB
     Indication: Secondary progressive multiple sclerosis
     Dosage: 600 MILLIGRAM
     Route: 042
     Dates: start: 20201028
  5. CORTISONE [Suspect]
     Active Substance: CORTISONE
     Indication: Product used for unknown indication
     Dosage: ALTERNATIVE TO VOLON A
     Dates: start: 20200810, end: 20200813
  6. NOVALGIN                           /06276704/ [Concomitant]
     Dosage: UNK
  7. VOLON A                            /00031902/ [Concomitant]
     Dosage: 100 MILLIGRAM
     Dates: start: 20200409
  8. VOLON A                            /00031902/ [Concomitant]
     Dosage: INTO SPINAL FLUID
  9. OXYCODONE [Concomitant]
     Active Substance: OXYCODONE
     Dosage: UNK
  10. OXYCODONE [Concomitant]
     Active Substance: OXYCODONE
     Dosage: 5 MILLIGRAM AS NEEDED (UP TO 4 TABLETS DAILY) AS REQUIRED
  11. ALBUTEROL [Concomitant]
     Active Substance: ALBUTEROL
     Dosage: UNK
  12. CHOLECALCIFEROL [Concomitant]
     Active Substance: CHOLECALCIFEROL
     Dosage: 20000 INTERNATIONAL UNIT, QW
  13. DOMPERIDONE [Concomitant]
     Active Substance: DOMPERIDONE
     Dosage: UNK
  14. IBUPROFEN [Concomitant]
     Active Substance: IBUPROFEN
     Dosage: UNK

REACTIONS (38)
  - Gastritis erosive [Recovered/Resolved]
  - Urinary tract infection bacterial [Recovered/Resolved]
  - Cushing^s syndrome [Not Recovered/Not Resolved]
  - Cataract [Not Recovered/Not Resolved]
  - Endometrial thickening [Not Recovered/Not Resolved]
  - Initial insomnia [Recovered/Resolved]
  - Insomnia [Recovered/Resolved]
  - Body fat disorder [Not Recovered/Not Resolved]
  - SARS-CoV-2 antibody test negative [Not Recovered/Not Resolved]
  - Rash [Recovered/Resolved]
  - B-lymphocyte count decreased [Not Recovered/Not Resolved]
  - Diarrhoea [Recovered/Resolved]
  - Osteoporosis [Unknown]
  - Gait disturbance [Not Recovered/Not Resolved]
  - Injection site warmth [Recovered/Resolved]
  - Blood cholesterol increased [Recovered/Resolved]
  - Weight increased [Not Recovered/Not Resolved]
  - Cystitis noninfective [Not Recovered/Not Resolved]
  - Calcinosis [Recovered/Resolved]
  - Paraesthesia [Recovered/Resolved]
  - Periorbital swelling [Not Recovered/Not Resolved]
  - Migraine [Unknown]
  - Bone pain [Recovered/Resolved]
  - Muscle spasticity [Recovered/Resolved]
  - Bone density increased [Not Recovered/Not Resolved]
  - Dizziness [Recovered/Resolved]
  - Asthenia [Recovered/Resolved]
  - Muscular weakness [Recovered/Resolved]
  - Alopecia [Recovering/Resolving]
  - Irritability [Not Recovered/Not Resolved]
  - Seborrhoeic keratosis [Unknown]
  - Mobility decreased [Recovered/Resolved]
  - Chronic gastritis [Not Recovered/Not Resolved]
  - Fluid retention [Not Recovered/Not Resolved]
  - Pain in extremity [Recovered/Resolved]
  - Arthralgia [Recovered/Resolved]
  - Injection site erythema [Recovered/Resolved]
  - Dry skin [Not Recovered/Not Resolved]

NARRATIVE: CASE EVENT DATE: 20180523
